FAERS Safety Report 7378761-1 (Version None)
Quarter: 2011Q1

REPORT INFORMATION
  Report Type: 
  Country: None (occurrence: None)
  Receive Date: 20110328
  Receipt Date: 20110316
  Transmission Date: 20110831
  Serious: Yes (Hospitalization)
  Sender: FDA-Public Use
  Company Number: JP-BRISTOL-MYERS SQUIBB COMPANY-15514250

PATIENT
  Age: 64 Year
  Sex: Male
  Weight: 65 kg

DRUGS (14)
  1. BUSCOPAN [Concomitant]
     Indication: PROPHYLAXIS
     Route: 042
     Dates: start: 20101109, end: 20110222
  2. BETAMETHASONE [Concomitant]
     Indication: PROPHYLAXIS
     Route: 061
     Dates: start: 20101109, end: 20110220
  3. 5-FLUOROURACIL [Concomitant]
     Indication: COLON CANCER
     Dosage: 09NOV10-07DEC10:4250MG:1 IN 1 WEEK:IV DRIP 21DEC10-22FEB11:4100MG:1 IN 2 WEEK:IV DRIP
     Route: 040
     Dates: start: 20101109, end: 20110222
  4. LEUCOVORIN [Concomitant]
     Indication: COLON CANCER
     Route: 042
     Dates: start: 20101109, end: 20110222
  5. IRINOTECAN HYDROCHLORIDE [Concomitant]
     Indication: COLON CANCER
     Route: 042
     Dates: start: 20101109, end: 20110222
  6. HIRUDOID [Concomitant]
     Indication: PROPHYLAXIS
     Route: 061
     Dates: start: 20101109, end: 20110220
  7. POLARAMINE [Concomitant]
     Indication: PROPHYLAXIS
     Route: 048
     Dates: start: 20101109, end: 20110222
  8. ERBITUX [Suspect]
     Indication: COLON CANCER
     Dosage: 09:09NOV10-700MG 16NOV10-01MAR11:450MG 18JAN11:11 INF
     Route: 042
     Dates: start: 20101109, end: 20110301
  9. OXALIPLATIN [Concomitant]
     Indication: COLON CANCER
     Route: 042
     Dates: start: 20101109, end: 20110114
  10. ALOXI [Concomitant]
     Indication: ANTIEMETIC SUPPORTIVE CARE
     Route: 042
     Dates: start: 20101109
  11. DECADRON [Concomitant]
     Indication: PREMEDICATION
     Dosage: 4 MG;ORAL TABLET 09NOV10-22FEB11
     Route: 042
     Dates: start: 20101109
  12. CLOBETASONE BUTYRATE [Concomitant]
     Indication: PROPHYLAXIS
     Dosage: FORM: OINTMENT.
     Route: 061
     Dates: start: 20101109, end: 20110220
  13. RESTAMIN [Concomitant]
     Indication: PREMEDICATION
     Route: 048
     Dates: start: 20101109
  14. MINOMYCIN [Concomitant]
     Indication: PROPHYLAXIS
     Route: 048
     Dates: start: 20101109, end: 20110222

REACTIONS (1)
  - PULMONARY ARTERY THROMBOSIS [None]
